FAERS Safety Report 12324887 (Version 2)
Quarter: 2016Q2

REPORT INFORMATION
  Report Type: Report from Study
  Country: US (occurrence: US)
  Receive Date: 20160502
  Receipt Date: 20160511
  Transmission Date: 20160815
  Serious: Yes (Hospitalization, Other)
  Sender: FDA-Public Use
  Company Number: US-BAYER-2016-072792

PATIENT
  Age: 69 Year
  Sex: Male

DRUGS (2)
  1. XOFIGO [Suspect]
     Active Substance: RADIUM RA-223 DICHLORIDE
     Indication: METASTASES TO BONE
     Dosage: 89.90 ONCE EVERY 28 DAYS
     Route: 042
     Dates: start: 20160414
  2. XOFIGO [Suspect]
     Active Substance: RADIUM RA-223 DICHLORIDE
     Indication: PROSTATE CANCER STAGE IV
     Dosage: 153.40 UCI, ONCE EVERY 28 DAYS
     Route: 042
     Dates: start: 20160317, end: 20160317

REACTIONS (3)
  - Platelet count decreased [None]
  - Malaise [None]
  - Blood count abnormal [None]

NARRATIVE: CASE EVENT DATE: 20160414
